FAERS Safety Report 8183897-1 (Version None)
Quarter: 2012Q1

REPORT INFORMATION
  Report Type: 
  Country: None (occurrence: None)
  Receive Date: 20120305
  Receipt Date: 20120301
  Transmission Date: 20120608
  Serious: Yes (Other)
  Sender: FDA-Public Use
  Company Number: US-PFIZER INC-2012056236

PATIENT
  Sex: Male

DRUGS (2)
  1. ZYBAN [Suspect]
     Dosage: UNK
  2. CHANTIX [Suspect]
     Dosage: UNK

REACTIONS (4)
  - LIMB DISCOMFORT [None]
  - BLOOD PRESSURE ABNORMAL [None]
  - MUSCULOSKELETAL DISCOMFORT [None]
  - ARTHROPATHY [None]
